FAERS Safety Report 9697501 (Version 1)
Quarter: 2013Q4

REPORT INFORMATION
  Report Type: Spontaneous
  Country: US (occurrence: None)
  Receive Date: 20131119
  Receipt Date: 20131119
  Transmission Date: 20140711
  Serious: No
  Sender: FDA-Public Use
  Company Number: None

PATIENT
  Age: 46 Year
  Sex: Female

DRUGS (7)
  1. LISINOPRIL [Suspect]
     Indication: HYPERTENSION
     Route: 048
     Dates: start: 20121025, end: 20130531
  2. PRESTIQ [Concomitant]
  3. INDERAL [Concomitant]
  4. HYDROCHLOR [Concomitant]
  5. VITAMIN D [Concomitant]
  6. VITAMIN B12 [Concomitant]
  7. ALEVE [Concomitant]

REACTIONS (12)
  - Swelling [None]
  - Dyspnoea [None]
  - Palpitations [None]
  - Vision blurred [None]
  - Vision blurred [None]
  - Job dissatisfaction [None]
  - Gait disturbance [None]
  - Cough [None]
  - Insomnia [None]
  - Local swelling [None]
  - Paraesthesia [None]
  - Arthralgia [None]
